FAERS Safety Report 4736157-2 (Version None)
Quarter: 2005Q3

REPORT INFORMATION
  Report Type: 
  Country: None (occurrence: None)
  Receive Date: 20050728
  Receipt Date: 20050509
  Transmission Date: 20060218
  Serious: Yes (Other)
  Sender: FDA-Public Use
  Company Number: 200511756US

PATIENT
  Age: 27 Year
  Sex: Male

DRUGS (1)
  1. KETEK [Suspect]
     Dosage: 400 MG ONCE PO
     Route: 048
     Dates: start: 20050201

REACTIONS (6)
  - BACK PAIN [None]
  - HALLUCINATION [None]
  - LOSS OF CONSCIOUSNESS [None]
  - PALPITATIONS [None]
  - RASH [None]
  - TACHYCARDIA [None]
